FAERS Safety Report 12076424 (Version 1)
Quarter: 2016Q1

REPORT INFORMATION
  Report Type: Spontaneous
  Country: NG (occurrence: NG)
  Receive Date: 20160215
  Receipt Date: 20160215
  Transmission Date: 20160526
  Serious: Yes (Hospitalization)
  Sender: FDA-Public Use
  Company Number: NG-ACCORD-037888

PATIENT
  Age: 8 Month
  Sex: Male

DRUGS (6)
  1. ATROPINE. [Concomitant]
     Active Substance: ATROPINE
     Dosage: 5 % 8 HOURLY POST-OPERATIVE
  2. MOXIFLOXACIN/MOXIFLOXACIN HYDROCHLORIDE [Concomitant]
     Dosage: 4 HOURLY POST OPERATIVE.
  3. TIMOLOL. [Concomitant]
     Active Substance: TIMOLOL
     Dosage: 5 % POST OPERATIVE,WHICH WAS LATER DISCONTINUED.
  4. FLUOROURACIL. [Suspect]
     Active Substance: FLUOROURACIL
     Indication: DEVELOPMENTAL GLAUCOMA
  5. DEXAMETHASONE. [Concomitant]
     Active Substance: DEXAMETHASONE
     Dosage: 2 HOURLY IN THE LEFT AND 4 HOURLY ON THE RIGHT POST-OPERATIVE
  6. HYPOTEARS [Concomitant]
     Active Substance: POLYETHYLENE GLYCOL 400\POLYVINYL ALCOHOL
     Dosage: HYPOTEARS GEL WAS GIVEN PRE-OPERATIVE.

REACTIONS (1)
  - Choroidal haemorrhage [Recovered/Resolved]
